FAERS Safety Report 8181884-0 (Version None)
Quarter: 2012Q1

REPORT INFORMATION
  Report Type: 
  Country: None (occurrence: None)
  Receive Date: 20120302
  Receipt Date: 20120221
  Transmission Date: 20120608
  Serious: Yes (Death)
  Sender: FDA-Public Use
  Company Number: IT-ROCHE-1037551

PATIENT

DRUGS (11)
  1. FENTANYL-100 [Concomitant]
     Route: 062
     Dates: start: 20111201, end: 20120206
  2. FLUOROURACIL [Concomitant]
     Dates: start: 20111102
  3. VALPRESSION [Concomitant]
  4. CAPECITABINE (RO 09-1978) [Concomitant]
     Indication: CHEMOTHERAPY
  5. IRINOTECAN HCL [Concomitant]
     Dates: start: 20110501, end: 20110901
  6. OXALIPLATIN [Concomitant]
     Indication: CHEMOTHERAPY
  7. LEUCOVORIN CALCIUM [Concomitant]
     Indication: CHEMOTHERAPY
     Dates: start: 20110501, end: 20110901
  8. FLUOROURACIL [Concomitant]
     Indication: CHEMOTHERAPY
     Dates: start: 20110501, end: 20110901
  9. AVASTIN [Suspect]
     Indication: COLON CANCER
     Route: 042
     Dates: start: 20111102, end: 20120202
  10. NORVASC [Concomitant]
  11. LEUCOVORIN CALCIUM [Concomitant]
     Dates: start: 20111102

REACTIONS (1)
  - SUDDEN DEATH [None]
